FAERS Safety Report 9886599 (Version 2)
Quarter: 2014Q1

REPORT INFORMATION
  Report Type: Spontaneous
  Country: IT (occurrence: HR)
  Receive Date: 20140210
  Receipt Date: 20140306
  Transmission Date: 20141002
  Serious: Yes (Other)
  Sender: FDA-Public Use
  Company Number: HR-FRI-1000054082

PATIENT
  Age: 65 Year
  Sex: Female

DRUGS (3)
  1. NEBIVOLOL [Suspect]
     Indication: ANGINA PECTORIS
     Dosage: 1.25 MG
     Route: 048
     Dates: start: 20111018
  2. SEROXAT [Concomitant]
     Indication: DEPRESSION
     Dosage: 20 MG
     Dates: start: 20130919
  3. NORMABEL [Concomitant]
     Dates: start: 20130919

REACTIONS (2)
  - Eye haemorrhage [Recovered/Resolved]
  - Off label use [Not Recovered/Not Resolved]
